FAERS Safety Report 20308323 (Version 1)
Quarter: 2022Q1

REPORT INFORMATION
  Report Type: Spontaneous
  Country: US (occurrence: US)
  Receive Date: 20220107
  Receipt Date: 20220107
  Transmission Date: 20220423
  Serious: Yes (Death, Hospitalization, Other)
  Sender: FDA-Public Use
  Company Number: US-APOTEX-2022AP000510

PATIENT
  Age: 30 Year
  Sex: Male

DRUGS (10)
  1. FENTANYL [Suspect]
     Active Substance: FENTANYL
     Indication: Product used for unknown indication
     Dosage: UNK
     Route: 048
  2. FENTANYL [Suspect]
     Active Substance: FENTANYL
     Dosage: UNK
  3. ALCOHOL [Suspect]
     Active Substance: ALCOHOL
     Indication: Product used for unknown indication
     Dosage: UNK
     Route: 048
  4. ALCOHOL [Suspect]
     Active Substance: ALCOHOL
     Dosage: UNK
  5. OXYCODONE [Suspect]
     Active Substance: OXYCODONE
     Indication: Product used for unknown indication
     Dosage: UNK
     Route: 048
  6. OXYCODONE [Suspect]
     Active Substance: OXYCODONE
     Dosage: UNK
  7. PHENCYCLIDINE [Suspect]
     Active Substance: PHENCYCLIDINE
     Indication: Product used for unknown indication
     Dosage: UNK
     Route: 048
  8. PHENCYCLIDINE [Suspect]
     Active Substance: PHENCYCLIDINE
     Dosage: UNK
  9. COCAINE [Suspect]
     Active Substance: COCAINE
     Indication: Product used for unknown indication
     Dosage: UNK
     Route: 048
  10. COCAINE [Suspect]
     Active Substance: COCAINE
     Dosage: UNK

REACTIONS (2)
  - Drug abuse [Fatal]
  - Cardio-respiratory arrest [Fatal]

NARRATIVE: CASE EVENT DATE: 20200101
